FAERS Safety Report 8798089 (Version 1)
Quarter: 2012Q4

REPORT INFORMATION
  Report Type: 
  Country: US (occurrence: US)
  Receive Date: 20120920
  Receipt Date: 20120920
  Transmission Date: 20130627
  Serious: Yes (Other)
  Sender: FDA-Public Use
  Company Number: US-ASTRAZENECA-2012SE71098

PATIENT
  Sex: Female

DRUGS (4)
  1. SYMBICORT PMDI [Suspect]
     Indication: COUGH
     Dosage: 160/4.5 MCG 2 PUFFS, TWO TIMES PER DAY
     Route: 055
     Dates: start: 2007
  2. SYMBICORT PMDI [Suspect]
     Indication: WHEEZING
     Dosage: 160/4.5 MCG 2 PUFFS, TWO TIMES PER DAY
     Route: 055
     Dates: start: 2007
  3. SYMBICORT PMDI [Suspect]
     Indication: COUGH
     Dosage: 160/4.5 MCG 2 PUFFS, TWO TIMES PER DAY
     Route: 055
  4. SYMBICORT PMDI [Suspect]
     Indication: WHEEZING
     Dosage: 160/4.5 MCG 2 PUFFS, TWO TIMES PER DAY
     Route: 055

REACTIONS (4)
  - Spinal fracture [Unknown]
  - Osteoporosis [Unknown]
  - Asthma [Unknown]
  - Off label use [Unknown]
